FAERS Safety Report 6313886-0 (Version None)
Quarter: 2009Q3

REPORT INFORMATION
  Report Type: 
  Country: None (occurrence: None)
  Receive Date: 20090818
  Receipt Date: 20090715
  Transmission Date: 20100115
  Serious: Yes (Hospitalization)
  Sender: FDA-Public Use
  Company Number: CR-WYE-H10574709

PATIENT
  Sex: Male

DRUGS (1)
  1. PANTECTA [Suspect]
     Dosage: 40 MG, FREQUENCY UNSPECIFIED

REACTIONS (2)
  - MALAISE [None]
  - RENAL FAILURE [None]
